FAERS Safety Report 15902121 (Version 1)
Quarter: 2019Q1

REPORT INFORMATION
  Report Type: Spontaneous
  Country: US (occurrence: US)
  Receive Date: 20190201
  Receipt Date: 20190201
  Transmission Date: 20190417
  Serious: Yes (Hospitalization)
  Sender: FDA-Public Use
  Company Number: US-OTSUKA-2018_024264

PATIENT
  Sex: Female

DRUGS (3)
  1. ABILIFY [Suspect]
     Active Substance: ARIPIPRAZOLE
     Indication: ANXIETY
     Dosage: 30 MG, UNK
     Route: 065
     Dates: start: 2005, end: 2015
  2. ABILIFY [Suspect]
     Active Substance: ARIPIPRAZOLE
     Indication: BIPOLAR DISORDER
     Dosage: UNK
     Route: 065
     Dates: end: 20161201
  3. ARIPIPRAZOLE. [Concomitant]
     Active Substance: ARIPIPRAZOLE
     Indication: PRODUCT USED FOR UNKNOWN INDICATION
     Dosage: UNK
     Route: 065

REACTIONS (9)
  - Mental disorder [Not Recovered/Not Resolved]
  - Dermatillomania [Not Recovered/Not Resolved]
  - Obsessive-compulsive disorder [Unknown]
  - Condition aggravated [Recovered/Resolved]
  - Trichotillomania [Not Recovered/Not Resolved]
  - Economic problem [Unknown]
  - Product use in unapproved indication [Unknown]
  - Eating disorder [Not Recovered/Not Resolved]
  - Gambling disorder [Recovered/Resolved]

NARRATIVE: CASE EVENT DATE: 2005
